FAERS Safety Report 8863308 (Version 2)
Quarter: 2013Q1

REPORT INFORMATION
  Report Type: Spontaneous
  Country: JP (occurrence: JP)
  Receive Date: 20121025
  Receipt Date: 20130107
  Transmission Date: 20140127
  Serious: Yes (Death, Other)
  Sender: FDA-Public Use
  Company Number: PHHY2012JP095661

PATIENT
  Age: 87 Year
  Sex: Female
  Weight: 37 kg

DRUGS (8)
  1. EXELON PATCH [Suspect]
     Indication: DEMENTIA ALZHEIMER^S TYPE
     Dosage: 4.5 MG, DAILY
     Route: 062
     Dates: start: 20120529
  2. ALDACTONE A [Concomitant]
     Dosage: 25 MG, UNK
     Route: 048
  3. GASTER D [Concomitant]
     Dosage: 1 DF, UNK
     Route: 048
  4. ARTIST [Concomitant]
     Dosage: 2.5 MG, UNK
     Route: 048
  5. GASMOTIN [Concomitant]
     Dosage: 3 DF, UNK
  6. THYRADIN S [Concomitant]
     Dosage: 0.5 MG, UNK
     Route: 048
  7. FUROSEMIDE [Concomitant]
     Dosage: 0.5 MG, UNK
     Route: 048
  8. MAGMITT [Concomitant]
     Dosage: 3 MG, UNK
     Route: 048

REACTIONS (9)
  - Death [Fatal]
  - Oedema peripheral [Fatal]
  - Pyrexia [Fatal]
  - Cardiac failure chronic [Unknown]
  - Anaemia [Unknown]
  - Hypoalbuminaemia [Unknown]
  - Hepatic function abnormal [Unknown]
  - Hyponatraemia [Unknown]
  - Urinary tract infection [Unknown]
